FAERS Safety Report 7226664-5 (Version None)
Quarter: 2011Q1

REPORT INFORMATION
  Report Type: 
  Country: None (occurrence: None)
  Receive Date: 20110105
  Receipt Date: 20101222
  Transmission Date: 20110831
  Serious: Yes (Other)
  Sender: FDA-Public Use
  Company Number: 2010P1003147

PATIENT
  Age: 69 Year
  Weight: 68.0396 kg

DRUGS (5)
  1. COLCHICINE [Suspect]
     Indication: CONDITION AGGRAVATED
     Dosage: PO
     Route: 048
  2. COLCHICINE [Suspect]
     Indication: GOUT
     Dosage: PO
     Route: 048
  3. COLCRYS [Suspect]
     Indication: GOUT
     Dosage: 0.6 MG;TID;PO
     Route: 048
     Dates: start: 20101207, end: 20101210
  4. COLCRYS [Suspect]
     Indication: CONDITION AGGRAVATED
     Dosage: 0.6 MG;TID;PO
     Route: 048
     Dates: start: 20101207, end: 20101210
  5. ANTI-INFLAMMATORY MEDICAITON(CON.) [Concomitant]

REACTIONS (5)
  - ABDOMINAL DISCOMFORT [None]
  - DISCOMFORT [None]
  - DIARRHOEA [None]
  - APHAGIA [None]
  - DIABETES MELLITUS [None]
